FAERS Safety Report 9799554 (Version 2)
Quarter: 2015Q3

REPORT INFORMATION
  Report Type: Spontaneous
  Country: US (occurrence: US)
  Receive Date: 20140106
  Receipt Date: 20150806
  Transmission Date: 20151125
  Serious: Yes (Hospitalization)
  Sender: FDA-Public Use
  Company Number: US-GILEAD-2010-0030195

PATIENT
  Age: 69 Year
  Sex: Female
  Weight: 106.59 kg

DRUGS (22)
  1. HCTZ [Concomitant]
     Active Substance: HYDROCHLOROTHIAZIDE
  2. LEVEMIR [Concomitant]
     Active Substance: INSULIN DETEMIR
  3. POTASSIUM CHLORIDE. [Concomitant]
     Active Substance: POTASSIUM CHLORIDE
  4. MUCINEX [Concomitant]
     Active Substance: GUAIFENESIN
  5. OXYGEN. [Concomitant]
     Active Substance: OXYGEN
  6. XOPENEX [Concomitant]
     Active Substance: LEVALBUTEROL HYDROCHLORIDE
  7. NOVOLIN [Concomitant]
     Active Substance: INSULIN HUMAN
  8. PREDNISONE. [Concomitant]
     Active Substance: PREDNISONE
  9. NEXIUM [Concomitant]
     Active Substance: ESOMEPRAZOLE MAGNESIUM
  10. ADCIRCA [Concomitant]
     Active Substance: TADALAFIL
  11. MEGA DOSE [Concomitant]
  12. CHROMIUM PICO [Concomitant]
  13. TYLENOL P.M. [Concomitant]
  14. LASIX [Concomitant]
     Active Substance: FUROSEMIDE
  15. ATACAND [Concomitant]
     Active Substance: CANDESARTAN CILEXETIL
  16. CELLCEPT [Concomitant]
     Active Substance: MYCOPHENOLATE MOFETIL\MYCOPHENOLATE MOFETIL HYDROCHLORIDE
  17. ALLOPURINOL. [Concomitant]
     Active Substance: ALLOPURINOL
  18. GERITOL COMPLETE [Concomitant]
  19. RESTASIS [Concomitant]
     Active Substance: CYCLOSPORINE
  20. LETAIRIS [Suspect]
     Active Substance: AMBRISENTAN
     Indication: PULMONARY ARTERIAL HYPERTENSION
     Route: 048
     Dates: start: 20090225
  21. VITAMIN D [Concomitant]
     Active Substance: CHOLECALCIFEROL
  22. CLONIDINE. [Concomitant]
     Active Substance: CLONIDINE

REACTIONS (1)
  - Swelling [Unknown]
